FAERS Safety Report 20912108 (Version 7)
Quarter: 2024Q2

REPORT INFORMATION
  Report Type: Spontaneous
  Country: US (occurrence: US)
  Receive Date: 20220603
  Receipt Date: 20240605
  Transmission Date: 20240716
  Serious: No
  Sender: FDA-Public Use
  Company Number: US-PFIZER INC-202200785631

PATIENT
  Age: 28 Year
  Sex: Male

DRUGS (3)
  1. SOMAVERT [Suspect]
     Active Substance: PEGVISOMANT
     Indication: Acromegaly
     Dosage: 20 MG, CYCLIC, THREE TIMES A WEEK
     Route: 058
     Dates: start: 20220530, end: 202404
  2. SOMAVERT [Suspect]
     Active Substance: PEGVISOMANT
     Indication: Multiple sclerosis
     Dosage: 30 MG, CYCLIC (30MG UNDER SKIN THREE TIMES PER WEEK)
     Route: 058
     Dates: start: 202404
  3. SOMAVERT [Suspect]
     Active Substance: PEGVISOMANT
     Dosage: 30 MG, CYCLIC (30MG UNDER SKIN THREE TIMES PER WEEK)
     Route: 058

REACTIONS (3)
  - Diarrhoea [Unknown]
  - Off label use [Unknown]
  - Product dose omission in error [Unknown]
